FAERS Safety Report 10429897 (Version 1)
Quarter: 2014Q3

REPORT INFORMATION
  Report Type: Spontaneous
  Country: US (occurrence: None)
  Receive Date: 20140805
  Receipt Date: 20140805
  Transmission Date: 20150326
  Serious: Yes (Other)
  Sender: FDA-Public Use
  Company Number: INS201406-000116

PATIENT
  Age: 45 Year
  Sex: Female

DRUGS (3)
  1. SUBSYS [Suspect]
     Active Substance: FENTANYL
     Indication: PAIN
  2. SUBSYS [Suspect]
     Active Substance: FENTANYL
     Indication: PELVIC PAIN
  3. SUBSYS [Suspect]
     Active Substance: FENTANYL
     Indication: BLADDER PAIN

REACTIONS (9)
  - Urinary retention [None]
  - Oral discomfort [None]
  - Off label use [None]
  - Nausea [None]
  - Lacrimation increased [None]
  - Application site irritation [None]
  - Somnolence [None]
  - Drug ineffective [None]
  - Salivary hypersecretion [None]

NARRATIVE: CASE EVENT DATE: 20140623
